FAERS Safety Report 5767925-6 (Version None)
Quarter: 2008Q2

REPORT INFORMATION
  Report Type: 
  Country: None (occurrence: None)
  Receive Date: 20080612
  Receipt Date: 20080602
  Transmission Date: 20081010
  Serious: Yes (Hospitalization, Other)
  Sender: FDA-Public Use
  Company Number: US-ABBOTT-08P-163-0456040-00

PATIENT
  Sex: Female
  Weight: 79.45 kg

DRUGS (1)
  1. HUMIRA [Suspect]
     Indication: RHEUMATOID ARTHRITIS
     Route: 050
     Dates: start: 20030101

REACTIONS (3)
  - CATHETERISATION CARDIAC [None]
  - CYSTITIS [None]
  - FATIGUE [None]
